FAERS Safety Report 10063287 (Version 3)
Quarter: 2014Q2

REPORT INFORMATION
  Report Type: Spontaneous
  Country: JP (occurrence: JP)
  Receive Date: 20140407
  Receipt Date: 20140602
  Transmission Date: 20141212
  Serious: Yes (Death, Life-Threatening, Congenital Anomaly, Other)
  Sender: FDA-Public Use
  Company Number: JP-TEVA-472546ISR

PATIENT
  Age: 62 Year
  Sex: Male

DRUGS (5)
  1. PLATOSIN [Suspect]
     Indication: OESOPHAGEAL CARCINOMA
  2. SOLU-MEDROL [Suspect]
     Indication: INTERSTITIAL LUNG DISEASE
     Dosage: 1 GRAM DAILY;
     Route: 041
  3. FLUOROURACIL [Suspect]
     Indication: OESOPHAGEAL CARCINOMA
  4. MEDROL [Suspect]
     Dosage: 16 MILLIGRAM DAILY;
     Route: 048
  5. DOCETAXEL [Concomitant]

REACTIONS (8)
  - Cytomegalovirus colitis [Unknown]
  - Cerebrovascular accident [Unknown]
  - Interstitial lung disease [Unknown]
  - Tracheo-oesophageal fistula [Fatal]
  - Pneumonia aspiration [Fatal]
  - Gastrointestinal perforation [Unknown]
  - Melaena [Unknown]
  - Peritonitis [Unknown]
